FAERS Safety Report 25090603 (Version 1)
Quarter: 2025Q1

REPORT INFORMATION
  Report Type: Spontaneous
  Country: US (occurrence: US)
  Receive Date: 20250318
  Receipt Date: 20250318
  Transmission Date: 20250409
  Serious: Yes (Hospitalization)
  Sender: UPSHER SMITH LABORATORIES
  Company Number: US-UPSHER-SMITH LABORATORIES, LLC-20250300682

PATIENT
  Age: 0 Year

DRUGS (1)
  1. VIGADRONE [Suspect]
     Active Substance: VIGABATRIN
     Indication: Infantile spasms
     Route: 048
     Dates: start: 20250206

REACTIONS (1)
  - Respiratory syncytial virus infection [Not Recovered/Not Resolved]

NARRATIVE: CASE EVENT DATE: 20250225
